FAERS Safety Report 14254012 (Version 1)
Quarter: 2017Q4

REPORT INFORMATION
  Report Type: Spontaneous
  Country: GB (occurrence: GB)
  Receive Date: 20171206
  Receipt Date: 20171206
  Transmission Date: 20180321
  Serious: Yes (Disabling, Other)
  Sender: FDA-Public Use
  Company Number: GB-ACCORD-061606

PATIENT
  Age: 41 Year
  Sex: Male

DRUGS (2)
  1. CLOZAPINE. [Suspect]
     Active Substance: CLOZAPINE
     Indication: NERVOUSNESS
     Dosage: 100 MG, AM ?100 MG, NOON ?DOSE INCREASED TO 125 MG (PM) ??ALSO RECEIVED 225 MG QD FROM 2005
     Dates: start: 2012
  2. LORAZEPAM. [Suspect]
     Active Substance: LORAZEPAM
     Indication: PRODUCT USED FOR UNKNOWN INDICATION

REACTIONS (10)
  - Agitation [Unknown]
  - Autism spectrum disorder [Unknown]
  - Hypotension [Unknown]
  - Parkinson^s disease [Unknown]
  - Living in residential institution [Unknown]
  - Salivary hypersecretion [Unknown]
  - Visual impairment [Unknown]
  - Heart rate increased [Unknown]
  - Weight decreased [Unknown]
  - Wrong technique in product usage process [Unknown]

NARRATIVE: CASE EVENT DATE: 2012
